FAERS Safety Report 9138863 (Version 13)
Quarter: 2014Q1

REPORT INFORMATION
  Report Type: Spontaneous
  Country: US (occurrence: US)
  Receive Date: 20130305
  Receipt Date: 20140324
  Transmission Date: 20141002
  Serious: Yes (Other)
  Sender: FDA-Public Use
  Company Number: US-PFIZER INC-2013072448

PATIENT
  Age: 65 Year
  Sex: Male
  Weight: 118.82 kg

DRUGS (26)
  1. SUTENT [Suspect]
     Indication: RENAL CELL CARCINOMA
     Dosage: 25 MG, 1X/DAY,  CYCLIC (ONCE DAILY, 4 WEEKS ON/2 WEEKS OFF)
     Route: 048
     Dates: start: 20130221, end: 20130320
  2. SUTENT [Suspect]
     Dosage: 37.5 MG, 1X/DAY , CYCLIC (ONCE DAILY, 4 WEEKS ON/2 WEEKS OFF)
     Route: 048
     Dates: start: 20130404, end: 20130418
  3. SUTENT [Suspect]
     Dosage: 25 MG, 1X/DAY, CYCLIC (ONCE DAILY, 4 WEEKS ON/2 WEEKS OFF)
     Route: 048
     Dates: start: 20130419, end: 20140307
  4. SUTENT [Suspect]
     Dosage: UNK
     Dates: end: 20140307
  5. SINGULAIR [Concomitant]
     Dosage: UNK
  6. VITAMIN D [Concomitant]
     Dosage: UNK
  7. WELLBUTRIN [Concomitant]
     Dosage: UNK
  8. ASPIRIN [Concomitant]
     Dosage: 325 MG, UNK
  9. NIFEDIPINE [Concomitant]
     Dosage: UNK
  10. LIPITOR [Concomitant]
     Dosage: UNK
  11. AVALIDE [Concomitant]
     Dosage: UNK
  12. TRAZODONE [Concomitant]
     Dosage: UNK
  13. TRICOR [Concomitant]
     Dosage: UNK
  14. TOPROL [Concomitant]
     Dosage: UNK
  15. CIALIS [Concomitant]
     Dosage: UNK, AS NEEDED
  16. PANTOPRAZOLE [Concomitant]
     Dosage: UNK
  17. CLARITIN [Concomitant]
     Dosage: UNK
  18. PLAVIX [Concomitant]
     Dosage: UNK
  19. METFORMIN [Concomitant]
     Dosage: UNK
  20. LANTUS [Concomitant]
     Dosage: UNK
  21. HUMALOG [Concomitant]
     Dosage: UNK
  22. BACTRIM [Concomitant]
     Dosage: UNK
  23. PROTONIX [Concomitant]
     Dosage: UNK
  24. M.V.I. [Concomitant]
     Dosage: UNK
  25. STOOL SOFTENER [Concomitant]
     Dosage: UNK
  26. MIRACLE MOUTH WASH [Concomitant]
     Dosage: UNK

REACTIONS (37)
  - Urinary tract infection [Unknown]
  - Lung infection [Unknown]
  - Pneumonia [Recovering/Resolving]
  - Glossodynia [Unknown]
  - Cough [Not Recovered/Not Resolved]
  - Red blood cell count decreased [Unknown]
  - Dysgeusia [Unknown]
  - Fatigue [Unknown]
  - Dizziness [Unknown]
  - Nausea [Unknown]
  - Abdominal discomfort [Unknown]
  - Oral pain [Recovering/Resolving]
  - Blood pressure decreased [Unknown]
  - Dry skin [Unknown]
  - Rash [Unknown]
  - Contusion [Not Recovered/Not Resolved]
  - Local swelling [Unknown]
  - Epistaxis [Unknown]
  - Chills [Unknown]
  - Blood glucose decreased [Unknown]
  - Diarrhoea [Recovered/Resolved]
  - Productive cough [Unknown]
  - Flatulence [Unknown]
  - Abdominal distension [Unknown]
  - Disease progression [Unknown]
  - Renal cell carcinoma [Unknown]
  - Cough [Unknown]
  - Bacterial infection [Recovering/Resolving]
  - Haemoptysis [Unknown]
  - Secretion discharge [Recovering/Resolving]
  - Platelet count decreased [Unknown]
  - White blood cell count decreased [Unknown]
  - Upper respiratory tract infection [Unknown]
  - Sputum discoloured [Unknown]
  - Feeling abnormal [Unknown]
  - Nasal congestion [Unknown]
  - Tooth disorder [Unknown]
